FAERS Safety Report 24308529 (Version 1)
Quarter: 2024Q3

REPORT INFORMATION
  Report Type: Spontaneous
  Country: US (occurrence: None)
  Receive Date: 20240911
  Receipt Date: 20240911
  Transmission Date: 20241016
  Serious: Yes (Hospitalization)
  Sender: Public
  Company Number: None

PATIENT
  Age: 33 Year
  Sex: Female

DRUGS (1)
  1. DEFERASIROX [Suspect]
     Active Substance: DEFERASIROX
     Indication: Toxicity to various agents
     Dosage: FREQUENCY : DAILY;?

REACTIONS (2)
  - Illness [None]
  - Drug ineffective [None]

NARRATIVE: CASE EVENT DATE: 20240728
